FAERS Safety Report 14479432 (Version 5)
Quarter: 2023Q2

REPORT INFORMATION
  Report Type: Spontaneous
  Country: PL (occurrence: PL)
  Receive Date: 20180202
  Receipt Date: 20230512
  Transmission Date: 20230721
  Serious: Yes (Hospitalization, Other)
  Sender: FDA-Public Use
  Company Number: PL-AUROBINDO-AUR-APL-2018-004188

PATIENT
  Age: 34 Year
  Sex: Female

DRUGS (11)
  1. FLUOXETINE [Interacting]
     Active Substance: FLUOXETINE HYDROCHLORIDE
     Indication: Bulimia nervosa
     Dosage: 20 MILLIGRAM, ONCE A DAY (MORNING DOSE OF 20 MG)
     Route: 048
  2. FLUOXETINE [Interacting]
     Active Substance: FLUOXETINE HYDROCHLORIDE
     Indication: Depressive symptom
     Dosage: 60 MILLIGRAM, ONCE A DAY (MORNING DOSE OF 20 MG)
     Route: 048
  3. FLUOXETINE [Interacting]
     Active Substance: FLUOXETINE HYDROCHLORIDE
     Indication: Vomiting
     Dosage: 40 MILLIGRAM, ONCE A DAY (MORNING DOSE OF 20 MG)
     Route: 048
  4. FLUOXETINE [Interacting]
     Active Substance: FLUOXETINE HYDROCHLORIDE
     Indication: Binge eating
  5. HYDROXYZINE [Interacting]
     Active Substance: HYDROXYZINE HYDROCHLORIDE
     Indication: Depressive symptom
     Dosage: 75 MILLIGRAM, ONCE A DAY
     Route: 065
  6. AMITRIPTYLINE HYDROCHLORIDE [Interacting]
     Active Substance: AMITRIPTYLINE HYDROCHLORIDE
     Indication: Depressive symptom
     Dosage: 3 DOSAGE FORM, DAILY (25 MG IN THE MORNING AND AT NOON AND 50 MG AT NIGHT )
     Route: 065
  7. AMITRIPTYLINE HYDROCHLORIDE [Interacting]
     Active Substance: AMITRIPTYLINE HYDROCHLORIDE
     Dosage: UNK, ONCE A DAY (3)
     Route: 065
  8. AMITRIPTYLINE HYDROCHLORIDE [Interacting]
     Active Substance: AMITRIPTYLINE HYDROCHLORIDE
     Dosage: 25 MILLIGRAM
     Route: 065
  9. AMITRIPTYLINE HYDROCHLORIDE [Interacting]
     Active Substance: AMITRIPTYLINE HYDROCHLORIDE
     Dosage: 50 MILLIGRAM, ONCE A DAY
     Route: 065
  10. METFORMIN [Concomitant]
     Active Substance: METFORMIN HYDROCHLORIDE
     Indication: Diabetes mellitus
     Dosage: UNK
     Route: 065
  11. INSULIN NOS [Concomitant]
     Active Substance: INSULIN NOS
     Indication: Diabetes mellitus
     Dosage: UNK
     Route: 065

REACTIONS (26)
  - Insomnia [Unknown]
  - Drug resistance [Unknown]
  - Drug interaction [Unknown]
  - Vomiting [Unknown]
  - Drug ineffective [Unknown]
  - Tearfulness [Not Recovered/Not Resolved]
  - Hypoglycaemia [Unknown]
  - Tension [Not Recovered/Not Resolved]
  - Weight increased [Unknown]
  - Diet failure [Unknown]
  - Binge eating [Not Recovered/Not Resolved]
  - Anxiety [Not Recovered/Not Resolved]
  - Underdose [Unknown]
  - Increased appetite [Not Recovered/Not Resolved]
  - Aspartate aminotransferase increased [Unknown]
  - Blood glucose increased [Unknown]
  - Fear [Not Recovered/Not Resolved]
  - Alanine aminotransferase increased [Unknown]
  - Affect lability [Not Recovered/Not Resolved]
  - Electrocardiogram QT prolonged [Unknown]
  - Dysphoria [Not Recovered/Not Resolved]
  - Body mass index increased [Unknown]
  - Hyperglycaemia [Unknown]
  - Irritability [Not Recovered/Not Resolved]
  - Poor quality sleep [Unknown]
  - Condition aggravated [Unknown]
